FAERS Safety Report 7191386-6 (Version None)
Quarter: 2010Q4

REPORT INFORMATION
  Report Type: 
  Country: None (occurrence: None)
  Receive Date: 20101223
  Receipt Date: 20100816
  Transmission Date: 20110411
  Serious: No
  Sender: FDA-Public Use
  Company Number: US-AMGEN-KDL431569

PATIENT

DRUGS (8)
  1. ENBREL [Suspect]
     Indication: PRODUCT USED FOR UNKNOWN INDICATION
     Dosage: 50 MG, QWK
     Route: 058
  2. LEVOTHYROXINE SODIUM [Concomitant]
     Dosage: 50 A?G, UNK
  3. ERGOCALCIFEROL [Concomitant]
     Dosage: 50000 IU, UNK
  4. METOPROLOL/HYDROCHLOROTHIAZIDE [Concomitant]
     Dosage: 25 MG, UNK
  5. MULTI-VITAMINS [Concomitant]
     Dosage: UNK UNK, UNK
  6. LORATADINE [Concomitant]
     Dosage: 10 MG, UNK
  7. FISH OIL [Concomitant]
     Dosage: UNK UNK, UNK
  8. CALCIUM WITH VITAMIN D [Concomitant]
     Dosage: UNK UNK, UNK

REACTIONS (3)
  - PRURITUS [None]
  - RASH [None]
  - URTICARIA [None]
